FAERS Safety Report 4303656-7 (Version None)
Quarter: 2004Q1

REPORT INFORMATION
  Report Type: 
  Country: None (occurrence: None)
  Receive Date: 20040224
  Receipt Date: 20040224
  Transmission Date: 20041129
  Serious: Yes (Hospitalization)
  Sender: FDA-Public Use
  Company Number: None

PATIENT
  Sex: Female

DRUGS (1)
  1. INTEGRILIN [Suspect]
     Indication: CORONARY ANGIOPLASTY
     Dosage: 180 MCG/X2 IV, 2 MCG/KG/MIM IV
     Route: 042
     Dates: start: 20021108, end: 20021108

REACTIONS (1)
  - PLATELET COUNT DECREASED [None]
